FAERS Safety Report 7757562 (Version 2)
Quarter: 2012Q4

REPORT INFORMATION
  Report Type: 
  Country: CA (occurrence: CA)
  Receive Date: 20110112
  Receipt Date: 20121025
  Transmission Date: 20130627
  Serious: Yes (Other)
  Sender: FDA-Public Use
  Company Number: PHHY2007CA03775

PATIENT
  Sex: Female

DRUGS (3)
  1. SANDOSTATIN LAR [Suspect]
     Indication: CARCINOID TUMOUR
     Dosage: 30 mg, every 4 weeks
     Route: 030
     Dates: start: 20050913
  2. SANDOSTATIN LAR [Suspect]
     Dosage: 30 mg, every 2 weeks
     Route: 030
  3. SANDOSTATIN LAR [Suspect]
     Dates: start: 20071115

REACTIONS (14)
  - Blood pressure systolic increased [Unknown]
  - Arthralgia [Unknown]
  - Musculoskeletal pain [Unknown]
  - Hypotension [Unknown]
  - Incorrect storage of drug [Unknown]
  - Anxiety [Unknown]
  - Flushing [Unknown]
  - Stress [Unknown]
  - Tumour marker increased [Unknown]
  - Serum serotonin increased [Unknown]
  - Blood chromogranin A increased [Unknown]
  - Heart rate decreased [Unknown]
  - Abdominal pain [Unknown]
  - Injection site pain [Unknown]
